FAERS Safety Report 13358846 (Version 2)
Quarter: 2017Q2

REPORT INFORMATION
  Report Type: Spontaneous
  Country: AT (occurrence: AT)
  Receive Date: 20170322
  Receipt Date: 20170509
  Transmission Date: 20170830
  Serious: Yes (Death, Other)
  Sender: FDA-Public Use
  Company Number: AT-BAYER-2017-010428

PATIENT
  Age: 76 Year
  Sex: Male

DRUGS (6)
  1. STIVARGA [Suspect]
     Active Substance: REGORAFENIB
     Indication: HEPATOCELLULAR CARCINOMA
     Dosage: UNK
     Dates: start: 20160111, end: 20160121
  2. FRUSEMIDE [Suspect]
     Active Substance: FUROSEMIDE
     Indication: OEDEMA
     Dosage: 20 MG DAILY DOSE
     Dates: start: 20151105
  3. DAFLON [BIOFLAVONOIDS,DIOSMIN,HESPERIDIN] [Concomitant]
     Indication: PERIPHERAL VENOUS DISEASE
     Dosage: 500 MG DAILY DOSE
  4. CONCOR [Concomitant]
     Active Substance: BISOPROLOL FUMARATE
     Indication: HYPERTENSION
     Dosage: 2.5 MG DAILY DOSE
  5. OLEOVIT D3 [Concomitant]
     Active Substance: CHOLECALCIFEROL
     Indication: OSTEOPOROSIS
     Dosage: 6 GTT DAILY DOSE
  6. SPIRONOLACTON [Suspect]
     Active Substance: SPIRONOLACTONE
     Indication: OEDEMA
     Dosage: 100 MG DAILY DOSE
     Dates: start: 20151105

REACTIONS (18)
  - Hepatocellular carcinoma [None]
  - General physical health deterioration [Recovering/Resolving]
  - Metastases to peritoneum [None]
  - Metastases to lung [None]
  - Fall [None]
  - Nausea [Fatal]
  - Hypothyroidism [None]
  - Off label use [None]
  - Weight decreased [None]
  - Ascites [None]
  - Asthenia [Fatal]
  - Decreased appetite [Fatal]
  - Hepatic function abnormal [Fatal]
  - Cerebral haemorrhage [Fatal]
  - Hyperbilirubinaemia [Fatal]
  - General physical health deterioration [Recovering/Resolving]
  - Fatigue [Fatal]
  - Encephalopathy [Fatal]

NARRATIVE: CASE EVENT DATE: 201601
